FAERS Safety Report 7874887-4 (Version None)
Quarter: 2011Q4

REPORT INFORMATION
  Report Type: 
  Country: None (occurrence: None)
  Receive Date: 20111031
  Receipt Date: 20111024
  Transmission Date: 20120403
  Serious: Yes (Death, Other)
  Sender: FDA-Public Use
  Company Number: FR-JNJFOC-20111012274

PATIENT

DRUGS (23)
  1. DOXORUBICIN HCL [Suspect]
     Route: 042
  2. CYCLOPHOSPHAMIDE [Suspect]
     Route: 065
  3. MESNA [Suspect]
     Route: 042
  4. ELDISINE [Suspect]
     Indication: LYMPHOMA
     Route: 065
  5. ELDISINE [Suspect]
     Route: 065
  6. ELDISINE [Suspect]
     Route: 065
  7. BLEOMYCIN SULFATE [Suspect]
     Route: 042
  8. METHOTREXATE [Suspect]
     Indication: LYMPHOMA
     Route: 037
  9. BLEOMYCIN SULFATE [Suspect]
     Route: 042
  10. DOXORUBICIN HCL [Suspect]
     Indication: LYMPHOMA
     Route: 042
  11. ELDISINE [Suspect]
     Route: 065
  12. BLEOMYCIN SULFATE [Suspect]
     Indication: LYMPHOMA
     Route: 042
  13. CYCLOPHOSPHAMIDE [Suspect]
     Route: 065
  14. MESNA [Suspect]
     Route: 042
  15. PREDNISONE [Suspect]
     Indication: LYMPHOMA
     Route: 048
  16. CYCLOPHOSPHAMIDE [Suspect]
     Indication: LYMPHOMA
     Route: 065
  17. MESNA [Suspect]
     Indication: LYMPHOMA
     Route: 042
  18. MESNA [Suspect]
     Route: 042
  19. BLEOMYCIN SULFATE [Suspect]
     Route: 042
  20. NEUPOGEN [Concomitant]
     Route: 065
  21. DOXORUBICIN HCL [Suspect]
     Route: 042
  22. DOXORUBICIN HCL [Suspect]
     Route: 042
  23. CYCLOPHOSPHAMIDE [Suspect]
     Route: 065

REACTIONS (2)
  - INFECTION [None]
  - TOXICITY TO VARIOUS AGENTS [None]
